FAERS Safety Report 22001719 (Version 1)
Quarter: 2023Q1

REPORT INFORMATION
  Report Type: Spontaneous
  Country: RU (occurrence: RU)
  Receive Date: 20230216
  Receipt Date: 20230216
  Transmission Date: 20230418
  Serious: Yes (Life-Threatening, Hospitalization)
  Sender: FDA-Public Use
  Company Number: RU-MLMSERVICE-20230131-4072086-1

PATIENT
  Age: 61 Year
  Sex: Male

DRUGS (13)
  1. DEXAMETHASONE [Suspect]
     Active Substance: DEXAMETHASONE
     Indication: COVID-19 pneumonia
     Route: 048
  2. DEXAMETHASONE [Suspect]
     Active Substance: DEXAMETHASONE
     Indication: COVID-19 pneumonia
     Route: 042
  3. DEXAMETHASONE [Suspect]
     Active Substance: DEXAMETHASONE
     Route: 042
  4. LEVILIMAB [Suspect]
     Active Substance: LEVILIMAB
     Indication: Cytokine storm
     Dosage: SINGLE DOSE
     Route: 042
  5. LEVOFLOXACIN [Suspect]
     Active Substance: LEVOFLOXACIN
     Indication: COVID-19
     Route: 065
  6. AMOXICILLIN\CLAVULANATE POTASSIUM [Suspect]
     Active Substance: AMOXICILLIN\CLAVULANATE POTASSIUM
     Indication: COVID-19
     Route: 065
  7. DEXAMETHASONE [Suspect]
     Active Substance: DEXAMETHASONE
     Indication: COVID-19 pneumonia
     Route: 048
  8. FAVIPIRAVIR [Concomitant]
     Active Substance: FAVIPIRAVIR
     Indication: COVID-19 pneumonia
     Route: 042
  9. OXYGEN [Concomitant]
     Active Substance: OXYGEN
     Indication: COVID-19 pneumonia
     Dosage: LOW-FLOW
  10. OXYGEN [Concomitant]
     Active Substance: OXYGEN
     Dosage: HIGH-FLOW OXYGEN THERAPY, 55-60 L/MIN
  11. AMBROXOL [Concomitant]
     Active Substance: AMBROXOL
     Indication: COVID-19 pneumonia
     Route: 048
  12. NADROPARIN [Concomitant]
     Active Substance: NADROPARIN
     Indication: COVID-19 pneumonia
     Dosage: NADROPARIN 5700 ANTI-XA IU
     Route: 058
  13. RIVAROXABAN [Concomitant]
     Active Substance: RIVAROXABAN
     Indication: COVID-19

REACTIONS (4)
  - Pneumonia [Recovered/Resolved]
  - Lung abscess [Recovered/Resolved]
  - Klebsiella infection [Recovered/Resolved]
  - Acinetobacter infection [Recovered/Resolved]
